FAERS Safety Report 14735606 (Version 2)
Quarter: 2018Q2

REPORT INFORMATION
  Report Type: Spontaneous
  Country: US (occurrence: US)
  Receive Date: 20180409
  Receipt Date: 20180423
  Transmission Date: 20180711
  Serious: Yes (Hospitalization, Other)
  Sender: FDA-Public Use
  Company Number: US-IMPAX LABORATORIES, INC-2018-IPXL-01110

PATIENT
  Age: 22 Year
  Sex: Female
  Weight: 59 kg

DRUGS (3)
  1. DEXEDRINE SPANSULE [Suspect]
     Active Substance: DEXTROAMPHETAMINE SULFATE
     Indication: ATTENTION DEFICIT/HYPERACTIVITY DISORDER
     Dosage: 6 DF, DAILY
     Route: 048
  2. DEXEDRINE SPANSULE [Suspect]
     Active Substance: DEXTROAMPHETAMINE SULFATE
     Dosage: 10 MG 5 TIMES A DAY
     Route: 048
  3. DEXEDRINE SPANSULE [Suspect]
     Active Substance: DEXTROAMPHETAMINE SULFATE
     Indication: BULIMIA NERVOSA
     Dosage: 30MG THREE TIMES A DAY (WHEN 17 YEARS OLD)
     Route: 048
     Dates: start: 2013, end: 2015

REACTIONS (6)
  - Antisocial behaviour [Unknown]
  - Insomnia [Unknown]
  - Splenic injury [Unknown]
  - Imprisonment [Unknown]
  - Road traffic accident [Unknown]
  - Psychotic disorder [Unknown]

NARRATIVE: CASE EVENT DATE: 2016
